FAERS Safety Report 20096633 (Version 2)
Quarter: 2021Q4

REPORT INFORMATION
  Report Type: Spontaneous
  Country: EG (occurrence: None)
  Receive Date: 20211122
  Receipt Date: 20211126
  Transmission Date: 20220304
  Serious: Yes (Life-Threatening, Hospitalization, Other)
  Sender: FDA-Public Use
  Company Number: 2021A813048

PATIENT
  Age: 45 Year
  Sex: Female

DRUGS (3)
  1. TICAGRELOR [Suspect]
     Active Substance: TICAGRELOR
     Route: 048
  2. ASPIRIN [Concomitant]
     Active Substance: ASPIRIN
  3. ANTI-HYPERLIPIDEMIC [Concomitant]

REACTIONS (2)
  - Myocardial infarction [Recovering/Resolving]
  - Percutaneous coronary intervention [Recovering/Resolving]
